FAERS Safety Report 15711176 (Version 1)
Quarter: 2018Q4

REPORT INFORMATION
  Report Type: Spontaneous
  Country: GB (occurrence: GB)
  Receive Date: 20181211
  Receipt Date: 20181211
  Transmission Date: 20190205
  Serious: Yes (Other)
  Sender: FDA-Public Use
  Company Number: GB-PFIZER INC-2018509371

PATIENT
  Age: 70 Year

DRUGS (6)
  1. PRIADEL [LITHIUM CARBONATE] [Interacting]
     Active Substance: LITHIUM CARBONATE
     Dosage: UNK
  2. RAMIPRIL. [Suspect]
     Active Substance: RAMIPRIL
     Dosage: UNK
  3. OXYCODONE [Interacting]
     Active Substance: OXYCODONE
     Dosage: UNK
  4. PROCHLORPERAZINE. [Interacting]
     Active Substance: PROCHLORPERAZINE
     Dosage: UNK
  5. TRANYLCYPROMINE [Interacting]
     Active Substance: TRANYLCYPROMINE
     Dosage: UNK
  6. MORPHINE SULFATE. [Interacting]
     Active Substance: MORPHINE SULFATE
     Dosage: UNK

REACTIONS (8)
  - Drug interaction [Unknown]
  - Nausea [Unknown]
  - Confusional state [Unknown]
  - Therapeutic drug monitoring analysis incorrectly performed [Unknown]
  - Tremor [Unknown]
  - Toxicity to various agents [Unknown]
  - Coordination abnormal [Unknown]
  - Renal impairment [Unknown]
